FAERS Safety Report 7931072-5 (Version None)
Quarter: 2011Q4

REPORT INFORMATION
  Report Type: 
  Country: None (occurrence: None)
  Receive Date: 20111121
  Receipt Date: 20111114
  Transmission Date: 20120403
  Serious: Yes (Other)
  Sender: FDA-Public Use
  Company Number: US-JNJFOC-20111008929

PATIENT
  Sex: Male
  Weight: 113.4 kg

DRUGS (14)
  1. OSTEO BI-FLEX [Concomitant]
  2. FEXOFENADINE [Concomitant]
  3. GINKGO BILOBA [Concomitant]
  4. AMLODIPINE [Concomitant]
  5. XARELTO [Suspect]
     Indication: KNEE ARTHROPLASTY
     Route: 048
     Dates: start: 20111018, end: 20111020
  6. GARLIC [Concomitant]
  7. ASPIRIN [Concomitant]
  8. CITALOPRAM HYDROBROMIDE [Concomitant]
  9. FISH OIL [Concomitant]
  10. MULTI-VITAMINS [Concomitant]
  11. LIPITOR [Concomitant]
  12. QUINAPRIL [Concomitant]
  13. LUMIGAN [Concomitant]
  14. CALCIUM [Concomitant]

REACTIONS (1)
  - PULMONARY EMBOLISM [None]
